FAERS Safety Report 19091505 (Version 1)
Quarter: 2021Q2

REPORT INFORMATION
  Report Type: Spontaneous
  Country: US (occurrence: US)
  Receive Date: 20210405
  Receipt Date: 20210405
  Transmission Date: 20210717
  Serious: Yes (Other)
  Sender: FDA-Public Use
  Company Number: US-SA-2021SA109639

PATIENT
  Sex: Female

DRUGS (1)
  1. AUBAGIO [Suspect]
     Active Substance: TERIFLUNOMIDE
     Indication: MULTIPLE SCLEROSIS

REACTIONS (6)
  - Diarrhoea [Unknown]
  - Multiple sclerosis [Unknown]
  - Urinary retention [Unknown]
  - Peroneal nerve palsy [Unknown]
  - Nausea [Unknown]
  - Vomiting [Unknown]
